FAERS Safety Report 5336420-0 (Version None)
Quarter: 2007Q2

REPORT INFORMATION
  Report Type: 
  Country: None (occurrence: None)
  Receive Date: 20070523
  Receipt Date: 20070514
  Transmission Date: 20071010
  Serious: Yes (Death, Hospitalization)
  Sender: FDA-Public Use
  Company Number: CERZ-11627

PATIENT
  Age: 4 Year
  Sex: Female
  Weight: 16 kg

DRUGS (20)
  1. CEREZYME [Suspect]
     Indication: GAUCHER'S DISEASE
     Dosage: 1000 UNITS Q2WKS IV
     Route: 042
     Dates: start: 20030729, end: 20070403
  2. CEREZYME [Suspect]
  3. CARBOCISTEINE [Concomitant]
  4. SODIUM CROMOGLICATE [Concomitant]
  5. DIAZEPAM [Concomitant]
  6. UNSPECIFIED MEDICATION [Concomitant]
  7. DANTROLENE HYDROCHLORIDE [Concomitant]
  8. TIZANIDINE HCL [Concomitant]
  9. TRICHLORETHYL PHOSPHATE SODIUM [Concomitant]
  10. BACLOFEN [Concomitant]
  11. BIFIDOBACTERIUM [Concomitant]
  12. FAMOTIDINE [Concomitant]
  13. PHENOBARBITAL TAB [Concomitant]
  14. UNSPECIFIED MEDICATION [Concomitant]
  15. MOSAPRIDE CITRATE [Concomitant]
  16. TPN [Concomitant]
  17. SODIUM-POTASSIUM-MAGNESIUM COMBINED DRUG [Concomitant]
  18. OFLOXACIN [Concomitant]
  19. HEPARINOID [Concomitant]
  20. HYDROCORTISONE [Concomitant]

REACTIONS (8)
  - CARDIO-RESPIRATORY ARREST [None]
  - CONSTIPATION [None]
  - FEMUR FRACTURE [None]
  - FRACTURE [None]
  - INFECTION [None]
  - OSTEOMYELITIS BACTERIAL [None]
  - UPPER RESPIRATORY TRACT INFECTION [None]
  - URINARY TRACT INFECTION [None]
